FAERS Safety Report 7595303-6 (Version None)
Quarter: 2011Q2

REPORT INFORMATION
  Report Type: 
  Country: None (occurrence: None)
  Receive Date: 20110620
  Receipt Date: 20110419
  Transmission Date: 20111010
  Serious: Yes (Death, Other)
  Sender: FDA-Public Use
  Company Number: UTC-006475

PATIENT
  Age: 10 Year
  Sex: Female
  Weight: 29.5 kg

DRUGS (4)
  1. REVATIO [Concomitant]
  2. DIURETICS (DIURETICS) [Concomitant]
  3. TRACLEER [Concomitant]
  4. TYVASO [Suspect]
     Indication: PULMONARY HYPERTENSION
     Dosage: 48 MCG (12 MCG, 4 IN 1 D), INHALATION
     Route: 055
     Dates: start: 20110316

REACTIONS (2)
  - DISEASE PROGRESSION [None]
  - SYNCOPE [None]
